FAERS Safety Report 10991228 (Version 3)
Quarter: 2016Q4

REPORT INFORMATION
  Report Type: Spontaneous
  Country: US (occurrence: US)
  Receive Date: 20150406
  Receipt Date: 20161104
  Transmission Date: 20170206
  Serious: Yes (Hospitalization, Other)
  Sender: FDA-Public Use
  Company Number: US-BAYER-2015-087013

PATIENT
  Age: 32 Year
  Sex: Female

DRUGS (58)
  1. MIRENA [Suspect]
     Active Substance: LEVONORGESTREL
     Indication: CONTRACEPTION
     Dosage: 20 MCG/24HR, CONT
     Route: 015
     Dates: start: 20100113, end: 20140903
  2. GABAPENTIN. [Concomitant]
     Active Substance: GABAPENTIN
  3. CITALOPRAM [Concomitant]
     Active Substance: CITALOPRAM HYDROBROMIDE
     Indication: DEPRESSION
     Dosage: 40 MG, DAILY
  4. ZOLOFT [Concomitant]
     Active Substance: SERTRALINE HYDROCHLORIDE
  5. TOPAMAX [Concomitant]
     Active Substance: TOPIRAMATE
     Dosage: 150 MG, DAILY
  6. AMITRIPTYLINE [Concomitant]
     Active Substance: AMITRIPTYLINE
  7. DARVOCET [Concomitant]
     Active Substance: ACETAMINOPHEN\PROPOXYPHENE HYDROCHLORIDE
  8. PRENATAL VITAMINS [Concomitant]
     Active Substance: VITAMINS
  9. PROMETHAZINE HYDROCHLORIDE. [Concomitant]
     Active Substance: PROMETHAZINE HYDROCHLORIDE
  10. NAPROXEN. [Concomitant]
     Active Substance: NAPROXEN
  11. REGADENOSON [Concomitant]
     Active Substance: REGADENOSON
  12. LEVOTHYROXINE. [Concomitant]
     Active Substance: LEVOTHYROXINE
     Dosage: 150 ?G, UNK
     Route: 048
  13. AMITRIPTYLINE HYDROCHLORIDE. [Concomitant]
     Active Substance: AMITRIPTYLINE HYDROCHLORIDE
     Dosage: 25 MG, AT BEDTIME
  14. TOPIRAMATE. [Concomitant]
     Active Substance: TOPIRAMATE
     Indication: HEADACHE
     Dosage: 100 MG, BID
  15. VISINE [Concomitant]
     Active Substance: TETRAHYDROZOLINE HYDROCHLORIDE
  16. SYNTHROID [Concomitant]
     Active Substance: LEVOTHYROXINE SODIUM
  17. LEVOTHYROXINE SODIUM. [Concomitant]
     Active Substance: LEVOTHYROXINE SODIUM
  18. SUBLIMAZE [Concomitant]
     Active Substance: FENTANYL CITRATE
  19. VISTARIL [Concomitant]
     Active Substance: HYDROXYZINE PAMOATE
  20. MAXALT [Concomitant]
     Active Substance: RIZATRIPTAN BENZOATE
     Indication: HEADACHE
  21. ZOFRAN [Concomitant]
     Active Substance: ONDANSETRON HYDROCHLORIDE
  22. HYDROXYZINE [Concomitant]
     Active Substance: HYDROXYZINE\HYDROXYZINE HYDROCHLORIDE
  23. ACETAZOLAMIDE. [Concomitant]
     Active Substance: ACETAZOLAMIDE
  24. IMODIUM [Concomitant]
     Active Substance: LOPERAMIDE HYDROCHLORIDE
  25. PROMETHAZINE [Concomitant]
     Active Substance: PROMETHAZINE\PROMETHAZINE HYDROCHLORIDE
  26. HYDROXYZINE HCL [Concomitant]
     Active Substance: HYDROXYZINE HYDROCHLORIDE
  27. MEDROL [METHYLPREDNISOLONE ACETATE] [Concomitant]
  28. WELLBUTRIN [Concomitant]
     Active Substance: BUPROPION HYDROCHLORIDE
  29. B VITAMIN COMP [B5,B3,B6,B2,B1 HCL] [Concomitant]
  30. ALBUTEROL. [Concomitant]
     Active Substance: ALBUTEROL
  31. MIDAZOLAM [Suspect]
     Active Substance: MIDAZOLAM\MIDAZOLAM HYDROCHLORIDE
  32. LOVENOX [Concomitant]
     Active Substance: ENOXAPARIN SODIUM
  33. DEPAKOTE [Concomitant]
     Active Substance: DIVALPROEX SODIUM
     Dosage: 250 MG, QD
  34. CELEXA [Concomitant]
     Active Substance: CITALOPRAM HYDROBROMIDE
  35. MORPHINE [Concomitant]
     Active Substance: MORPHINE
     Indication: HEADACHE
  36. TIZANIDINE. [Concomitant]
     Active Substance: TIZANIDINE
  37. ZOFRAN [Concomitant]
     Active Substance: ONDANSETRON HYDROCHLORIDE
  38. MAGNESIUM [Concomitant]
     Active Substance: MAGNESIUM
  39. PRAMIPEXOLE. [Concomitant]
     Active Substance: PRAMIPEXOLE
  40. PROPRANOLOL [Concomitant]
     Active Substance: PROPRANOLOL\PROPRANOLOL HYDROCHLORIDE
  41. KETOCONAZOL [Concomitant]
     Active Substance: KETOCONAZOLE
  42. SOLU-MEDROL [Concomitant]
     Active Substance: METHYLPREDNISOLONE SODIUM SUCCINATE
  43. SENEXON [Concomitant]
     Active Substance: SENNOSIDES A AND B
  44. PRILOSEC [Concomitant]
     Active Substance: OMEPRAZOLE MAGNESIUM
     Dosage: 20 MG, UNK
     Route: 048
  45. FLAXSEED [Concomitant]
     Active Substance: FLAX SEED
  46. OXYCODONE [Concomitant]
     Active Substance: OXYCODONE
  47. ADVIL [Concomitant]
     Active Substance: IBUPROFEN
  48. BENADRYL [Concomitant]
     Active Substance: DIPHENHYDRAMINE HYDROCHLORIDE
  49. MORTIN [Concomitant]
     Active Substance: SULFAMETHOXAZOLE\TRIMETHOPRIM
  50. TYLENOL WITH CODEINE [Concomitant]
     Active Substance: ACETAMINOPHEN\CODEINE PHOSPHATE
  51. VICODIN [Concomitant]
     Active Substance: ACETAMINOPHEN\HYDROCODONE BITARTRATE
     Indication: HEADACHE
  52. PAXIL [Concomitant]
     Active Substance: PAROXETINE HYDROCHLORIDE
  53. TORADOL [Concomitant]
     Active Substance: KETOROLAC TROMETHAMINE
     Dosage: 10 MG, UNK
  54. ONDANSETRON [Concomitant]
     Active Substance: ONDANSETRON
     Dosage: 4 MG, UNK
  55. TOPIRAMATE. [Concomitant]
     Active Substance: TOPIRAMATE
     Indication: HEADACHE
     Dosage: 100 MG, UNK
     Route: 048
  56. MULTIVITAMIN [Concomitant]
     Active Substance: VITAMINS
  57. PEPCID [Concomitant]
     Active Substance: FAMOTIDINE
  58. ALEVE [Concomitant]
     Active Substance: NAPROXEN SODIUM

REACTIONS (10)
  - Injury [None]
  - Migraine [None]
  - CSF pressure increased [None]
  - Pain [None]
  - Nausea [None]
  - Vision blurred [None]
  - Benign intracranial hypertension [None]
  - Papilloedema [None]
  - Vomiting [None]
  - Visual impairment [None]

NARRATIVE: CASE EVENT DATE: 201002
